FAERS Safety Report 20015632 (Version 1)
Quarter: 2021Q4

REPORT INFORMATION
  Report Type: Spontaneous
  Country: US (occurrence: None)
  Receive Date: 20211101
  Receipt Date: 20211101
  Transmission Date: 20220303
  Serious: Yes (Hospitalization)
  Sender: FDA-Public Use
  Company Number: None

PATIENT
  Age: 36 Year
  Sex: Male
  Weight: 119 kg

DRUGS (1)
  1. GADOBUTROL [Suspect]
     Active Substance: GADOBUTROL
     Indication: Imaging procedure
     Dosage: FREQUENCY : ONCE;?OTHER ROUTE : IV;?
     Route: 050
     Dates: end: 20211028

REACTIONS (3)
  - Rash [None]
  - Urticaria [None]
  - Pruritus [None]

NARRATIVE: CASE EVENT DATE: 20211026
